FAERS Safety Report 17425283 (Version 2)
Quarter: 2020Q2

REPORT INFORMATION
  Report Type: Spontaneous
  Country: DE (occurrence: DE)
  Receive Date: 20200217
  Receipt Date: 20200513
  Transmission Date: 20200713
  Serious: Yes (Hospitalization, Other)
  Sender: FDA-Public Use
  Company Number: NVSC2020DE041338

PATIENT
  Age: 42 Year
  Sex: Male

DRUGS (2)
  1. LEVOFLOXACIN. [Suspect]
     Active Substance: LEVOFLOXACIN
     Indication: BORDETELLA INFECTION
     Dosage: UNK
     Route: 065
  2. LEVOFLOXACIN. [Suspect]
     Active Substance: LEVOFLOXACIN
     Indication: EVIDENCE BASED TREATMENT

REACTIONS (5)
  - Product use in unapproved indication [Unknown]
  - Anaphylactic reaction [Unknown]
  - Hypotension [Unknown]
  - Tachycardia [Unknown]
  - Dermatitis allergic [Unknown]
